FAERS Safety Report 17776120 (Version 7)
Quarter: 2022Q2

REPORT INFORMATION
  Report Type: Spontaneous
  Country: US (occurrence: US)
  Receive Date: 20200513
  Receipt Date: 20220601
  Transmission Date: 20220721
  Serious: Yes (Death, Hospitalization, Other)
  Sender: FDA-Public Use
  Company Number: US-PFIZER INC-2020191168

PATIENT
  Age: 74 Year
  Sex: Male

DRUGS (1)
  1. INLYTA [Suspect]
     Active Substance: AXITINIB
     Indication: Renal cancer
     Dosage: 5 MG

REACTIONS (11)
  - Death [Fatal]
  - Dyspnoea [Unknown]
  - Memory impairment [Unknown]
  - Hypotension [Unknown]
  - Dehydration [Unknown]
  - Addison^s disease [Unknown]
  - Loss of consciousness [Unknown]
  - Dysphonia [Unknown]
  - Weight decreased [Unknown]
  - Aphonia [Unknown]
  - Chronic obstructive pulmonary disease [Unknown]

NARRATIVE: CASE EVENT DATE: 20220408
